FAERS Safety Report 9379559 (Version 3)
Quarter: 2013Q3

REPORT INFORMATION
  Report Type: Spontaneous
  Country: US (occurrence: US)
  Receive Date: 20130702
  Receipt Date: 20130725
  Transmission Date: 20140515
  Serious: Yes (Hospitalization)
  Sender: FDA-Public Use
  Company Number: US-JNJFOC-20130616601

PATIENT
  Age: 68 Year
  Sex: Male

DRUGS (1)
  1. XARELTO [Suspect]
     Indication: PULMONARY EMBOLISM
     Route: 048

REACTIONS (1)
  - Acute hepatic failure [Unknown]
